FAERS Safety Report 4560811-9 (Version None)
Quarter: 2005Q1

REPORT INFORMATION
  Report Type: 
  Country: None (occurrence: None)
  Receive Date: 20050126
  Receipt Date: 20050118
  Transmission Date: 20050727
  Serious: Yes (Other)
  Sender: FDA-Public Use
  Company Number: PHFR2005GB00616

PATIENT
  Age: 47 Year
  Sex: Female

DRUGS (4)
  1. CLOZARIL [Suspect]
     Indication: SCHIZOPHRENIA
     Dosage: 300MG/DAY
     Route: 048
     Dates: start: 20041221
  2. DIAZEPAM [Concomitant]
     Route: 065
  3. CITALOPRAM [Concomitant]
     Dosage: 40MG/DAY
     Route: 065
  4. HYOSCINE HBR HYT [Concomitant]
     Dosage: 300 UG, TID
     Route: 065

REACTIONS (3)
  - ELECTROCARDIOGRAM QT PROLONGED [None]
  - EOSINOPHIL COUNT INCREASED [None]
  - TACHYCARDIA [None]
